FAERS Safety Report 15596249 (Version 7)
Quarter: 2019Q1

REPORT INFORMATION
  Report Type: Report from Study
  Country: None (occurrence: US)
  Receive Date: 20181108
  Receipt Date: 20190321
  Transmission Date: 20190417
  Serious: Yes (Other)
  Sender: FDA-Public Use
  Company Number: US-ABBVIE-18K-163-2500918-00

PATIENT
  Age: 63 Year
  Sex: Female

DRUGS (4)
  1. HUMIRA [Suspect]
     Active Substance: ADALIMUMAB
     Route: 058
     Dates: start: 20181022
  2. HUMIRA [Suspect]
     Active Substance: ADALIMUMAB
     Route: 058
  3. HUMIRA [Suspect]
     Active Substance: ADALIMUMAB
     Indication: CROHN^S DISEASE
     Dosage: DAY 1
     Route: 058
     Dates: start: 20180912, end: 20180912
  4. HUMIRA [Suspect]
     Active Substance: ADALIMUMAB
     Dosage: DAY 15
     Route: 058
     Dates: start: 20180926, end: 20180926

REACTIONS (32)
  - Therapeutic response unexpected [Recovered/Resolved]
  - Postoperative wound infection [Recovering/Resolving]
  - Administration site pain [Not Recovered/Not Resolved]
  - Headache [Recovering/Resolving]
  - Sinusitis [Recovered/Resolved]
  - Injection site bruising [Recovered/Resolved]
  - Lung neoplasm [Not Recovered/Not Resolved]
  - Pre-existing condition improved [Unknown]
  - Fatigue [Recovering/Resolving]
  - Nasal congestion [Unknown]
  - Incorrect dose administered [Unknown]
  - Anxiety [Unknown]
  - Insomnia [Unknown]
  - Decreased appetite [Recovering/Resolving]
  - Gastrointestinal wall abnormal [Not Recovered/Not Resolved]
  - Staphylococcus test positive [Recovered/Resolved]
  - Therapeutic response unexpected [Unknown]
  - Joint swelling [Unknown]
  - Blood glucose increased [Unknown]
  - Nausea [Unknown]
  - Faeces hard [Unknown]
  - Constipation [Not Recovered/Not Resolved]
  - Contusion [Recovering/Resolving]
  - Micrographic skin surgery [Unknown]
  - Fear [Unknown]
  - Abdominal distension [Unknown]
  - Abdominal pain upper [Not Recovered/Not Resolved]
  - Wrong technique in product usage process [Unknown]
  - Mass [Recovered/Resolved]
  - Pain in extremity [Recovering/Resolving]
  - Pre-existing condition improved [Recovered/Resolved]
  - Arthralgia [Unknown]

NARRATIVE: CASE EVENT DATE: 2018
